FAERS Safety Report 14400561 (Version 2)
Quarter: 2018Q1

REPORT INFORMATION
  Report Type: Spontaneous
  Country: US (occurrence: US)
  Receive Date: 20180117
  Receipt Date: 20180325
  Transmission Date: 20180509
  Serious: Yes (Other)
  Sender: FDA-Public Use
  Company Number: US-ROCHE-2054488

PATIENT
  Sex: Female
  Weight: 70.3 kg

DRUGS (3)
  1. SYNTHROID [Suspect]
     Active Substance: LEVOTHYROXINE SODIUM
     Indication: PRODUCT USED FOR UNKNOWN INDICATION
     Dosage: 88 MCG DAILY BRAND NAME ONLY ;ONGOING: YES
     Route: 048
  2. VALIUM [Suspect]
     Active Substance: DIAZEPAM
     Indication: FIBROMYALGIA
     Dosage: PRN CUT IN HALF TO EQUAL 5MG APPROX 1 PER MONTH ;ONGOING: UNKNOWN
     Route: 048
  3. VALIUM [Suspect]
     Active Substance: DIAZEPAM
     Indication: BACTERIAL COLITIS
     Dosage: 5 MG MORE FREQUENTLY THAN 1 PER MONTH ;ONGOING: YES
     Route: 048

REACTIONS (8)
  - Bacterial colitis [Unknown]
  - Muscle spasms [Unknown]
  - Off label use [Unknown]
  - Nausea [Unknown]
  - Intentional product use issue [Unknown]
  - Palpitations [Unknown]
  - Nervousness [Unknown]
  - Gastroenteritis [Unknown]
